FAERS Safety Report 12377915 (Version 1)
Quarter: 2016Q2

REPORT INFORMATION
  Report Type: Spontaneous
  Country: US (occurrence: US)
  Receive Date: 20160517
  Receipt Date: 20160517
  Transmission Date: 20160815
  Serious: No
  Sender: FDA-Public Use
  Company Number: US-JNJFOC-20160420322

PATIENT
  Age: 82 Year
  Sex: Male
  Weight: 74.84 kg

DRUGS (3)
  1. TYLENOL ARTHRITIS PAIN [Suspect]
     Active Substance: ACETAMINOPHEN
     Route: 048
  2. EXTRA STRENGH TYLENOL [Concomitant]
     Indication: ANALGESIC THERAPY
     Route: 065
  3. TYLENOL ARTHRITIS PAIN [Suspect]
     Active Substance: ACETAMINOPHEN
     Indication: ARTHRITIS
     Route: 048
     Dates: start: 20160418

REACTIONS (4)
  - Abdominal discomfort [Recovered/Resolved]
  - Flatulence [Recovered/Resolved]
  - Incorrect dose administered [Unknown]
  - Drug administration error [Unknown]

NARRATIVE: CASE EVENT DATE: 20160418
